FAERS Safety Report 9405299 (Version 1)
Quarter: 2013Q3

REPORT INFORMATION
  Report Type: Spontaneous
  Country: US (occurrence: US)
  Receive Date: 20130717
  Receipt Date: 20130717
  Transmission Date: 20140515
  Serious: Yes (Hospitalization)
  Sender: FDA-Public Use
  Company Number: US-PERRIGO-13US007106

PATIENT
  Age: 28 Year
  Sex: Female

DRUGS (1)
  1. MESALAMINE RX 66.667 MG/ML 2N9 [Suspect]
     Indication: CROHN^S DISEASE
     Dosage: UNK, UNK
     Route: 065

REACTIONS (7)
  - Renal failure acute [Recovered/Resolved]
  - Microangiopathic haemolytic anaemia [Recovered/Resolved]
  - Thrombotic thrombocytopenic purpura [Recovered/Resolved]
  - Haemolytic uraemic syndrome [Recovered/Resolved]
  - Vomiting [Recovered/Resolved]
  - Abdominal pain [Recovered/Resolved]
  - Pancreatitis acute [Recovered/Resolved]
